FAERS Safety Report 6501023-9 (Version None)
Quarter: 2009Q4

REPORT INFORMATION
  Report Type: 
  Country: None (occurrence: None)
  Receive Date: 20091216
  Receipt Date: 20090602
  Transmission Date: 20100525
  Serious: No
  Sender: FDA-Public Use
  Company Number: A0788154A

PATIENT
  Age: 57 Year
  Sex: Female

DRUGS (1)
  1. COMMIT [Suspect]
     Dates: start: 20090522, end: 20090525

REACTIONS (2)
  - FAECES DISCOLOURED [None]
  - PRODUCT QUALITY ISSUE [None]
